FAERS Safety Report 8081407-0 (Version None)
Quarter: 2012Q1

REPORT INFORMATION
  Report Type: 
  Country: None (occurrence: None)
  Receive Date: 20120130
  Receipt Date: 20120125
  Transmission Date: 20120608
  Serious: Yes (Hospitalization, Other)
  Sender: FDA-Public Use
  Company Number: NL-PFIZER INC-2011306802

PATIENT
  Age: 72 Year
  Sex: Female

DRUGS (6)
  1. METOPROLOL [Concomitant]
  2. TRIAMTERENE AND HYDROCHLOROTHIAZIDE [Concomitant]
  3. INSULIN ASPART [Concomitant]
  4. ATORVASTATIN [Concomitant]
  5. PANTOPRAZOLE [Suspect]
     Indication: GASTROINTESTINAL HAEMORRHAGE
  6. METFORMIN [Concomitant]

REACTIONS (2)
  - ADENOCARCINOMA [None]
  - TUBULOINTERSTITIAL NEPHRITIS [None]
